FAERS Safety Report 17989592 (Version 1)
Quarter: 2020Q3

REPORT INFORMATION
  Report Type: Spontaneous
  Country: US (occurrence: US)
  Receive Date: 20200707
  Receipt Date: 20200707
  Transmission Date: 20201103
  Serious: Yes (Hospitalization, Other)
  Sender: FDA-Public Use
  Company Number: US-MYLANLABS-2020M1061482

PATIENT
  Sex: Male

DRUGS (13)
  1. DOXORUBICIN [Suspect]
     Active Substance: DOXORUBICIN
     Indication: HEPATOBLASTOMA
     Dosage: SEVEN CYCLES INITIALY EMBRYONAL HEPATOBLASTOMA, LATER GIVEN AS INDUCTION THERAPY FOR PNT
     Route: 065
  2. DEXRAZOXANE. [Suspect]
     Active Substance: DEXRAZOXANE
     Indication: CHELATION THERAPY
     Route: 065
  3. CYCLOPHOSPHAMIDE. [Suspect]
     Active Substance: CYCLOPHOSPHAMIDE
     Indication: HEPATOBLASTOMA
     Dosage: ONE CYCLE INITIALY FOR EMBRYONAL HEPATOBLASTOMA, LATER GIVEN AS INDUCTION THERAPY FOR PNT
     Route: 065
  4. VINCRISTINE [Suspect]
     Active Substance: VINCRISTINE
     Indication: HEPATOBLASTOMA
     Dosage: SEVEN CYCLES INITIALY FOR EMBRYONAL HEPATOBLASTOMA, LATER GIVEN AS INDUCTION THERAPY FOR PNT
     Route: 065
  5. ETOPOSIDE. [Suspect]
     Active Substance: ETOPOSIDE
     Indication: PRIMITIVE NEUROECTODERMAL TUMOUR
     Dosage: INDUCTION THERAPY FOR PRIMITIVE NEUROECTODERMAL TUMOUR
     Route: 065
  6. NEULASTA [Suspect]
     Active Substance: PEGFILGRASTIM
     Indication: PRODUCT USED FOR UNKNOWN INDICATION
     Route: 065
  7. TOPOTECAN [Suspect]
     Active Substance: TOPOTECAN HYDROCHLORIDE
     Indication: HEPATOBLASTOMA
     Dosage: ONE CYCLE FOR EMBRYONAL HEPATOBLASTOMA
     Route: 065
  8. IFOSFAMIDE. [Suspect]
     Active Substance: IFOSFAMIDE
     Indication: PRIMITIVE NEUROECTODERMAL TUMOUR
     Dosage: INDUCTION THERAPY FOR PRIMITIVE NEUROECTODERMAL TUMOUR
     Route: 065
  9. CYCLOPHOSPHAMIDE. [Suspect]
     Active Substance: CYCLOPHOSPHAMIDE
     Indication: PRIMITIVE NEUROECTODERMAL TUMOUR
  10. DOXORUBICIN [Suspect]
     Active Substance: DOXORUBICIN
     Indication: PRIMITIVE NEUROECTODERMAL TUMOUR
  11. CISPLATIN. [Suspect]
     Active Substance: CISPLATIN
     Indication: HEPATOBLASTOMA
     Dosage: SEVEN CYCLES FOR EMBRYONAL HEPATOBLASTOMA
     Route: 065
  12. VINCRISTINE [Suspect]
     Active Substance: VINCRISTINE
     Indication: PRIMITIVE NEUROECTODERMAL TUMOUR
  13. FLUOROURACIL. [Suspect]
     Active Substance: FLUOROURACIL
     Indication: HEPATOBLASTOMA
     Dosage: SEVEN CYCLES FOR EMBRYONAL HEPATOBLASTOMA
     Route: 065

REACTIONS (5)
  - Second primary malignancy [Recovered/Resolved]
  - Candida sepsis [Recovering/Resolving]
  - Febrile neutropenia [Unknown]
  - Cardiac failure [Unknown]
  - Primitive neuroectodermal tumour [Recovered/Resolved]
